FAERS Safety Report 8717476 (Version 3)
Quarter: 2012Q4

REPORT INFORMATION
  Report Type: 
  Country: DE (occurrence: DE)
  Receive Date: 20120810
  Receipt Date: 20121029
  Transmission Date: 20130627
  Serious: Yes (Death, Hospitalization)
  Sender: FDA-Public Use
  Company Number: DE-JNJFOC-20120804727

PATIENT
  Age: 92 Year
  Sex: Female
  Weight: 48 kg

DRUGS (4)
  1. XARELTO [Suspect]
     Indication: DEEP VEIN THROMBOSIS
     Route: 065
     Dates: start: 20120610, end: 20120617
  2. XARELTO [Suspect]
     Indication: EMBOLISM VENOUS
     Route: 065
     Dates: start: 20120610, end: 20120617
  3. XARELTO [Suspect]
     Indication: THROMBOSIS
     Route: 065
     Dates: start: 20120610, end: 20120617
  4. HEPARIN [Concomitant]
     Indication: THROMBOSIS

REACTIONS (3)
  - Death [Fatal]
  - Muscle haemorrhage [Recovering/Resolving]
  - Anaemia [Unknown]
